FAERS Safety Report 8268069-4 (Version None)
Quarter: 2012Q2

REPORT INFORMATION
  Report Type: 
  Country: None (occurrence: None)
  Receive Date: 20120409
  Receipt Date: 20120326
  Transmission Date: 20120825
  Serious: Yes (Other)
  Sender: FDA-Public Use
  Company Number: US-MYLANLABS-2012S1006791

PATIENT
  Age: 62 Year
  Sex: Female

DRUGS (3)
  1. ALEMTUZUMAB [Concomitant]
     Indication: IMMUNOSUPPRESSION
     Dosage: SINGLE DOSE
     Route: 065
  2. TACROLIMUS [Suspect]
     Indication: IMMUNOSUPPRESSION
     Dosage: TACROLIMUS CONCENTRATION MAINTAINED AT 7-8 MG/L
     Route: 065
  3. METHYLPREDNISOLONE [Concomitant]
     Indication: IMMUNOSUPPRESSION
     Route: 065

REACTIONS (1)
  - OSMOTIC DEMYELINATION SYNDROME [None]
